FAERS Safety Report 20920531 (Version 1)
Quarter: 2022Q2

REPORT INFORMATION
  Report Type: Spontaneous
  Country: US (occurrence: None)
  Receive Date: 20220606
  Receipt Date: 20220606
  Transmission Date: 20220721
  Serious: Yes (Hospitalization)
  Sender: FDA-Public Use
  Company Number: 2022A201897

PATIENT
  Age: 810 Month
  Sex: Male
  Weight: 79.8 kg

DRUGS (1)
  1. SYMBICORT [Suspect]
     Active Substance: BUDESONIDE\FORMOTEROL FUMARATE DIHYDRATE
     Indication: Chronic obstructive pulmonary disease
     Dosage: SYMBICORT 80/4.5 MCG 2 PUFFS AS NEEDED UP TO TWO TIMES DAILY.
     Route: 055

REACTIONS (5)
  - Carbon dioxide increased [Unknown]
  - Loss of consciousness [Unknown]
  - Fall [Unknown]
  - Oxygen saturation decreased [Unknown]
  - Intentional device use issue [Not Recovered/Not Resolved]

NARRATIVE: CASE EVENT DATE: 20220201
